FAERS Safety Report 14996483 (Version 1)
Quarter: 2018Q2

REPORT INFORMATION
  Report Type: Spontaneous
  Country: US (occurrence: US)
  Receive Date: 20180611
  Receipt Date: 20180611
  Transmission Date: 20180711
  Serious: No
  Sender: FDA-Public Use
  Company Number: US-JNJFOC-20180608760

PATIENT
  Age: 31 Year
  Sex: Male

DRUGS (1)
  1. RISPERIDONE. [Suspect]
     Active Substance: RISPERIDONE
     Indication: PRODUCT USED FOR UNKNOWN INDICATION
     Route: 065

REACTIONS (10)
  - Paranoia [Unknown]
  - Fatigue [Unknown]
  - Vomiting [Unknown]
  - Drooling [Unknown]
  - Constipation [Unknown]
  - Hallucination [Unknown]
  - Dysphagia [Unknown]
  - Vision blurred [Unknown]
  - Dyskinesia [Unknown]
  - Tremor [Unknown]
